FAERS Safety Report 16713100 (Version 1)
Quarter: 2019Q3

REPORT INFORMATION
  Report Type: Spontaneous
  Country: BR (occurrence: BR)
  Receive Date: 20190817
  Receipt Date: 20190817
  Transmission Date: 20191004
  Serious: Yes (Other)
  Sender: FDA-Public Use
  Company Number: BR-009507513-1908BRA005293

PATIENT
  Sex: Female
  Weight: 72 kg

DRUGS (7)
  1. JARDIANCE [Concomitant]
     Active Substance: EMPAGLIFLOZIN
     Indication: DIABETES MELLITUS
     Dosage: 1 TABLET, QD
     Dates: start: 2013
  2. PURAN [Concomitant]
     Active Substance: LEVOTHYROXINE SODIUM
     Indication: THYROID DISORDER
     Dosage: 75 UNSPECIFIED UNIT
     Dates: start: 1999
  3. LOSARTAN HYDROCHLOROTHIAZIDE WINTHROP LAB [Concomitant]
     Indication: HYPERTENSION
     Dosage: UNK
     Dates: start: 2009
  4. DIAMICRON [Concomitant]
     Active Substance: GLICLAZIDE
     Dosage: 1 TABLET BY THE MORNING AND 1 TABLET BEFORE DINNER
     Route: 048
     Dates: start: 2016
  5. JANUMET XR [Suspect]
     Active Substance: METFORMIN HYDROCHLORIDE\SITAGLIPTIN PHOSPHATE
     Dosage: UNK
     Route: 048
     Dates: start: 201907
  6. BUSONID [Concomitant]
     Active Substance: BUDESONIDE
     Indication: ANTIALLERGIC THERAPY
     Dosage: UNK
     Dates: start: 2009
  7. JANUMET XR [Suspect]
     Active Substance: METFORMIN HYDROCHLORIDE\SITAGLIPTIN PHOSPHATE
     Indication: DIABETES MELLITUS
     Dosage: 1 TABLET AFTER LUNCH AND 1 TABLET AFTER DINNER/SOMETIMES, DOES NOT ADMINISTER THE NIGHT DOSE
     Route: 048
     Dates: start: 2013

REACTIONS (5)
  - Intentional dose omission [Unknown]
  - Cataract [Unknown]
  - Thyroid operation [Unknown]
  - Product physical issue [Unknown]
  - Inappropriate schedule of product administration [Unknown]

NARRATIVE: CASE EVENT DATE: 2019
